FAERS Safety Report 16969393 (Version 1)
Quarter: 2019Q4

REPORT INFORMATION
  Report Type: Spontaneous
  Country: FR (occurrence: FR)
  Receive Date: 20191029
  Receipt Date: 20191029
  Transmission Date: 20200122
  Serious: Yes (Other)
  Sender: FDA-Public Use
  Company Number: FR-SA-2019SA295041

PATIENT
  Age: 16 Year
  Sex: Female
  Weight: 69 kg

DRUGS (1)
  1. AUBAGIO [Suspect]
     Active Substance: TERIFLUNOMIDE
     Indication: MULTIPLE SCLEROSIS
     Dosage: UNK
     Route: 048
     Dates: start: 201904

REACTIONS (1)
  - Vulval ulceration [Recovered/Resolved]

NARRATIVE: CASE EVENT DATE: 201907
